FAERS Safety Report 7425141-6 (Version None)
Quarter: 2011Q2

REPORT INFORMATION
  Report Type: 
  Country: None (occurrence: None)
  Receive Date: 20110412
  Receipt Date: 20110328
  Transmission Date: 20111010
  Serious: Yes (Other)
  Sender: FDA-Public Use
  Company Number: AUR-APL-2011-01128

PATIENT
  Age: 82 Year
  Sex: Male

DRUGS (4)
  1. METOPROLOL TARTRATE [Suspect]
     Dosage: 50MG-
  2. CARDIZEM LA [Suspect]
  3. LIPITOR [Suspect]
     Dosage: 20MG-
  4. LEXAPRO [Suspect]
     Dosage: 10MG-

REACTIONS (1)
  - CARDIAC DISORDER [None]
